FAERS Safety Report 4754116-0 (Version None)
Quarter: 2005Q3

REPORT INFORMATION
  Report Type: 
  Country: None (occurrence: None)
  Receive Date: 20050826
  Receipt Date: 20050818
  Transmission Date: 20060218
  Serious: Yes (Hospitalization)
  Sender: FDA-Public Use
  Company Number: FR-MERCK-0508FRA00026

PATIENT
  Age: 72 Year
  Sex: Male

DRUGS (7)
  1. COSOPT [Suspect]
     Indication: GLAUCOMA
     Route: 047
     Dates: end: 20050718
  2. METFORMIN PAMOATE [Concomitant]
     Route: 065
  3. ASPIRIN LYSINE [Concomitant]
     Route: 065
  4. AMLODIPINE BESYLATE [Concomitant]
     Route: 065
  5. FLUOXETINE HYDROCHLORIDE [Concomitant]
     Route: 065
  6. REPAGLINIDE [Concomitant]
     Route: 065
  7. OMEPRAZOLE [Concomitant]
     Route: 065

REACTIONS (1)
  - PAROXYSMAL ARRHYTHMIA [None]
